FAERS Safety Report 8382159-7 (Version None)
Quarter: 2012Q2

REPORT INFORMATION
  Report Type: 
  Country: None (occurrence: None)
  Receive Date: 20120524
  Receipt Date: 20120518
  Transmission Date: 20120825
  Serious: Yes (Hospitalization)
  Sender: FDA-Public Use
  Company Number: DE-PFIZER INC-2012121943

PATIENT
  Age: 62 Year
  Sex: Male
  Weight: 87 kg

DRUGS (7)
  1. ENOXAPARIN SODIUM [Concomitant]
     Dosage: 80 UNK, 2X/DAY
  2. BISOPROLOL [Concomitant]
     Dosage: 5/12.5 MG, 2X/DAY
  3. DIPYRONE TAB [Concomitant]
     Dosage: 1000 MG, AS NEEDED
  4. TAXILAN [Concomitant]
     Dosage: 10 MG, 1X/DAY
  5. PANTOPRAZOLE [Concomitant]
     Dosage: 20 MG, 2X/DAY
  6. SUNITINIB MALATE [Suspect]
     Indication: RENAL CELL CARCINOMA
     Dosage: 50 MG, 1X/DAY, 28 DAYS, 2 WEEKS PAUSE
     Dates: start: 20120131, end: 20120328
  7. ALLOPURINOL [Concomitant]
     Dosage: 300 MG, 1X/DAY

REACTIONS (3)
  - DIARRHOEA [None]
  - DYSPHAGIA [None]
  - ABDOMINAL PAIN UPPER [None]
